FAERS Safety Report 6838803-6 (Version None)
Quarter: 2010Q3

REPORT INFORMATION
  Report Type: 
  Country: None (occurrence: None)
  Receive Date: 20100713
  Receipt Date: 20070626
  Transmission Date: 20110219
  Serious: No
  Sender: FDA-Public Use
  Company Number: US-PFIZER INC-2007040480

PATIENT
  Age: 42 Year
  Sex: Female

DRUGS (5)
  1. CHANTIX [Suspect]
     Indication: SMOKING CESSATION THERAPY
     Dates: start: 20061101, end: 20070601
  2. ANTIBIOTICS [Interacting]
     Indication: ARTHROPOD BITE
  3. XANAX [Concomitant]
  4. LORCET-HD [Concomitant]
  5. OTHER NERVOUS SYSTEM DRUGS [Concomitant]
     Indication: EMOTIONAL DISORDER

REACTIONS (16)
  - ARTHRALGIA [None]
  - DIZZINESS [None]
  - DRUG INTERACTION [None]
  - DRY MOUTH [None]
  - DYSGEUSIA [None]
  - FLATULENCE [None]
  - GINGIVAL DISORDER [None]
  - HEADACHE [None]
  - HYPERHIDROSIS [None]
  - IRRITABILITY [None]
  - MUSCLE SPASMS [None]
  - NAUSEA [None]
  - NERVOUSNESS [None]
  - TENSION HEADACHE [None]
  - TINNITUS [None]
  - VOMITING [None]
